FAERS Safety Report 18574883 (Version 1)
Quarter: 2020Q4

REPORT INFORMATION
  Report Type: Spontaneous
  Country: US (occurrence: US)
  Receive Date: 20201202
  Receipt Date: 20201202
  Transmission Date: 20210114
  Serious: No
  Sender: FDA-Public Use
  Company Number: None

PATIENT
  Age: 35 Year
  Sex: Male
  Weight: 72.8 kg

DRUGS (1)
  1. INFLIXIMAB-ABDA (INFLIXIMAB-DYYB 100MG/VIL INJ, LYPHL) [Suspect]
     Active Substance: INFLIXIMAB-ABDA
     Dates: start: 20171031, end: 20180108

REACTIONS (2)
  - Anaphylactic reaction [None]
  - Infusion related reaction [None]

NARRATIVE: CASE EVENT DATE: 20180108
